FAERS Safety Report 9346275 (Version 2)
Quarter: 2013Q2

REPORT INFORMATION
  Report Type: Spontaneous
  Country: ES (occurrence: ES)
  Receive Date: 20130613
  Receipt Date: 20130619
  Transmission Date: 20140414
  Serious: Yes (Other)
  Sender: FDA-Public Use
  Company Number: ES-ROCHE-1235671

PATIENT
  Age: 36 Year
  Sex: Female

DRUGS (5)
  1. MABTHERA [Suspect]
     Indication: LYMPHOMA
     Dosage: 6 CYCLES
     Route: 042
     Dates: start: 20090617, end: 200909
  2. MABTHERA [Suspect]
     Route: 065
     Dates: start: 20090725
  3. FLUDARABINE [Suspect]
     Indication: LYMPHOMA
     Dosage: 6 CYCLES
     Route: 065
     Dates: end: 20091225
  4. CYCLOPHOSPHAMIDE [Suspect]
     Indication: LYMPHOMA
     Route: 065
     Dates: end: 20091225
  5. FLEBOGAMMA (CZECH REPUBLIC) [Concomitant]
     Route: 042
     Dates: start: 20090126

REACTIONS (3)
  - Hypogammaglobulinaemia [Recovering/Resolving]
  - Disease progression [Recovering/Resolving]
  - Infection [Unknown]
